FAERS Safety Report 23454385 (Version 1)
Quarter: 2024Q1

REPORT INFORMATION
  Report Type: Spontaneous
  Country: US (occurrence: US)
  Receive Date: 20240130
  Receipt Date: 20240130
  Transmission Date: 20240410
  Serious: No
  Sender: FDA-Public Use
  Company Number: US-JNJFOC-20240127035

PATIENT
  Age: 3 Year

DRUGS (6)
  1. CHILDRENS TYLENOL [Suspect]
     Active Substance: ACETAMINOPHEN
     Indication: Pyrexia
     Route: 065
  2. CHILDRENS TYLENOL [Suspect]
     Active Substance: ACETAMINOPHEN
     Indication: Nasopharyngitis
  3. CHILDRENS TYLENOL [Suspect]
     Active Substance: ACETAMINOPHEN
     Indication: Nasal congestion
  4. CHILDRENS MOTRIN [Suspect]
     Active Substance: IBUPROFEN
     Indication: Pyrexia
     Route: 065
  5. CHILDRENS MOTRIN [Suspect]
     Active Substance: IBUPROFEN
     Indication: Nasopharyngitis
  6. CHILDRENS MOTRIN [Suspect]
     Active Substance: IBUPROFEN
     Indication: Nasal congestion

REACTIONS (1)
  - Product use in unapproved indication [Unknown]
